FAERS Safety Report 4646209-3 (Version None)
Quarter: 2005Q2

REPORT INFORMATION
  Report Type: 
  Country: None (occurrence: None)
  Receive Date: 20050422
  Receipt Date: 20050422
  Transmission Date: 20051028
  Serious: No
  Sender: FDA-Public Use
  Company Number: None

PATIENT
  Sex: Female
  Weight: 135.8 kg

DRUGS (1)
  1. CYTARABINE [Suspect]
     Indication: ACUTE MYELOID LEUKAEMIA
     Dosage: 3 G/M2 IV OVER 3 HOURS Q 12H ON DAYS 1, 3 AND 5 (TOTAL 6 DOSES)
     Route: 042
     Dates: start: 20041215

REACTIONS (4)
  - CHILLS [None]
  - NAUSEA [None]
  - PANCYTOPENIA [None]
  - PYREXIA [None]
